FAERS Safety Report 4688694-7 (Version None)
Quarter: 2005Q2

REPORT INFORMATION
  Report Type: 
  Country: None (occurrence: None)
  Receive Date: 20050613
  Receipt Date: 20050602
  Transmission Date: 20051028
  Serious: Yes (Hospitalization)
  Sender: FDA-Public Use
  Company Number: PHHO2005US08831

PATIENT
  Age: 84 Year
  Sex: Female

DRUGS (8)
  1. FAMCICLOVIR [Suspect]
     Dosage: 500 MG, TID
  2. POTASSIUM CHLORIDE [Concomitant]
  3. LESCOL XL [Concomitant]
  4. LASIX [Suspect]
  5. NEXIUM [Concomitant]
  6. ZYRTEC [Concomitant]
  7. AMBIEN [Concomitant]
  8. LISINOPRIL [Concomitant]

REACTIONS (8)
  - BLOOD CREATININE INCREASED [None]
  - BLOOD POTASSIUM INCREASED [None]
  - BLOOD UREA INCREASED [None]
  - DEHYDRATION [None]
  - DISORIENTATION [None]
  - DRUG INTOLERANCE [None]
  - PRURITUS [None]
  - VOMITING [None]
